FAERS Safety Report 14089044 (Version 4)
Quarter: 2018Q1

REPORT INFORMATION
  Report Type: Spontaneous
  Country: US (occurrence: US)
  Receive Date: 20171013
  Receipt Date: 20180216
  Transmission Date: 20180508
  Serious: Yes (Death, Hospitalization, Other)
  Sender: FDA-Public Use
  Company Number: US-TEVA-816220USA

PATIENT
  Age: 83 Year
  Sex: Male

DRUGS (6)
  1. POTASSIUM [Concomitant]
     Active Substance: POTASSIUM
     Dates: start: 2001, end: 20170912
  2. WARFARIN [Suspect]
     Active Substance: WARFARIN
     Dosage: 4 MG TUE/FRI, 5 MG REST OF THE WEEK
     Route: 065
     Dates: end: 20171214
  3. MYRBETRIQ [Suspect]
     Active Substance: MIRABEGRON
     Indication: BLADDER DISORDER
     Dosage: 50 MILLIGRAM DAILY;
     Route: 065
     Dates: start: 20170727, end: 20170821
  4. FUROSEMIDE. [Concomitant]
     Active Substance: FUROSEMIDE
     Dates: start: 2001, end: 20170912
  5. LOSARTAN. [Concomitant]
     Active Substance: LOSARTAN
     Dates: start: 2015, end: 20171214
  6. ALLOPURINOL. [Concomitant]
     Active Substance: ALLOPURINOL
     Dates: start: 20170912

REACTIONS (8)
  - Intentional product misuse [Unknown]
  - Subdural haemorrhage [Fatal]
  - Pyelonephritis [Recovered/Resolved]
  - Blood pressure increased [Recovering/Resolving]
  - Dementia [Fatal]
  - Vomiting [Recovered/Resolved]
  - Urinary tract infection [Recovered/Resolved]
  - Dysstasia [Not Recovered/Not Resolved]

NARRATIVE: CASE EVENT DATE: 20170822
